FAERS Safety Report 8152990-1 (Version None)
Quarter: 2012Q1

REPORT INFORMATION
  Report Type: 
  Country: None (occurrence: None)
  Receive Date: 20120221
  Receipt Date: 20120215
  Transmission Date: 20120608
  Serious: Yes (Other)
  Sender: FDA-Public Use
  Company Number: US-PFIZER INC-2012041645

PATIENT
  Sex: Female
  Weight: 70.748 kg

DRUGS (5)
  1. VITAMIN D [Concomitant]
     Indication: VITAMIN D DEFICIENCY
     Dosage: 50000 IU, WEEKLY
  2. MAGNESIUM [Concomitant]
     Indication: MALABSORPTION
     Dosage: UNK
  3. VITAMIN B-12 [Concomitant]
     Dosage: UNK
  4. CHANTIX [Suspect]
     Indication: SMOKING CESSATION THERAPY
     Dosage: 0.5 MG, DAILY
     Route: 048
     Dates: start: 20110101, end: 20110101
  5. CHANTIX [Suspect]
     Dosage: UNK
     Dates: start: 20110101, end: 20120201

REACTIONS (8)
  - IRRITABILITY [None]
  - HEADACHE [None]
  - ABNORMAL DREAMS [None]
  - FEELING JITTERY [None]
  - INSOMNIA [None]
  - PANIC ATTACK [None]
  - MOOD ALTERED [None]
  - ANXIETY [None]
